FAERS Safety Report 5761313-4 (Version None)
Quarter: 2008Q2

REPORT INFORMATION
  Report Type: 
  Country: None (occurrence: None)
  Receive Date: 20080606
  Receipt Date: 20080528
  Transmission Date: 20081010
  Serious: Yes (Hospitalization, Congenital Anomaly, Other)
  Sender: FDA-Public Use
  Company Number: JP-MERCK-0805USA06350

PATIENT
  Sex: Male
  Weight: 1 kg

DRUGS (1)
  1. DECADRON [Suspect]
     Route: 048

REACTIONS (5)
  - CONGENITAL DIAPHRAGMATIC HERNIA [None]
  - HYDROTHORAX [None]
  - PLEURAL EFFUSION [None]
  - PREMATURE BABY [None]
  - SMALL FOR DATES BABY [None]
